FAERS Safety Report 5256526-4 (Version None)
Quarter: 2007Q1

REPORT INFORMATION
  Report Type: 
  Country: None (occurrence: None)
  Receive Date: 20070306
  Receipt Date: 20070223
  Transmission Date: 20070707
  Serious: Yes (Hospitalization)
  Sender: FDA-Public Use
  Company Number: US-KINGPHARMUSA00001-K200700213

PATIENT

DRUGS (9)
  1. ALTACE [Suspect]
     Dosage: 10 MG, QD
     Route: 048
     Dates: end: 20070126
  2. OFLOCET  /00731801/ [Suspect]
     Indication: BRONCHOPNEUMOPATHY
     Dosage: 400 MG, QD
     Route: 048
     Dates: start: 20070120, end: 20070125
  3. ALDACTONE [Suspect]
     Route: 048
     Dates: start: 20070121, end: 20070126
  4. CORDARONE     /00133102/ [Suspect]
     Dosage: 6 U, TABLETS
     Route: 048
     Dates: start: 20070123, end: 20070126
  5. AUGMENTIN   /00756801/ [Suspect]
     Route: 042
     Dates: start: 20070119
  6. PRAVASTATIN [Suspect]
     Dosage: 20 MG, QD
     Route: 048
  7. SINTROM [Concomitant]
  8. LASILIX      /00032601/ [Concomitant]
     Route: 048
  9. DIFFU K [Concomitant]
     Dosage: UNK, UNK

REACTIONS (8)
  - BLOOD CREATINE PHOSPHOKINASE INCREASED [None]
  - BLOOD CREATININE INCREASED [None]
  - BRONCHOPNEUMOPATHY [None]
  - CALCULUS URINARY [None]
  - CARDIAC CIRRHOSIS [None]
  - CARDIAC FAILURE [None]
  - TRANSAMINASES INCREASED [None]
  - TROPONIN INCREASED [None]
